FAERS Safety Report 13976735 (Version 1)
Quarter: 2017Q3

REPORT INFORMATION
  Report Type: Spontaneous
  Country: US (occurrence: US)
  Receive Date: 20170915
  Receipt Date: 20170915
  Transmission Date: 20171128
  Serious: No
  Sender: FDA-Public Use
  Company Number: US-TEVA-743319ACC

PATIENT
  Sex: Male

DRUGS (8)
  1. SULFASALAZINE. [Concomitant]
     Active Substance: SULFASALAZINE
     Dosage: 4000 MILLIGRAM DAILY;
     Route: 048
  2. ASACOL 800 [Concomitant]
  3. MEZAVANT [Concomitant]
     Active Substance: MESALAMINE
  4. METHOTREXATE. [Suspect]
     Active Substance: METHOTREXATE
     Route: 065
  5. PREDNISONE. [Concomitant]
     Active Substance: PREDNISONE
  6. AZATHIOPRINE. [Concomitant]
     Active Substance: AZATHIOPRINE
  7. VYVANSE [Concomitant]
     Active Substance: LISDEXAMFETAMINE DIMESYLATE
     Dates: start: 201512
  8. INFLECTRA [Concomitant]
     Active Substance: INFLIXIMAB-DYYB

REACTIONS (1)
  - Drug intolerance [Unknown]
